FAERS Safety Report 4412027-4 (Version None)
Quarter: 2004Q3

REPORT INFORMATION
  Report Type: 
  Country: None (occurrence: None)
  Receive Date: 20040730
  Receipt Date: 20040721
  Transmission Date: 20050211
  Serious: Yes (Other)
  Sender: FDA-Public Use
  Company Number: PHBS2004LB09690

PATIENT
  Age: 43 Year
  Sex: Male

DRUGS (4)
  1. CYCLOSPORINE [Suspect]
     Indication: PYODERMA GANGRENOSUM
  2. PREDNISONE [Suspect]
     Indication: PYODERMA GANGRENOSUM
     Dosage: 10-80 MG/D
  3. INFLIXIMAB [Suspect]
     Indication: PYODERMA GANGRENOSUM
     Dosage: 400 MG, ONCE/SINGLE
     Dates: start: 20030511
  4. INFLIXIMAB [Suspect]
     Dosage: 400 MG, ONCE/SINGLE
     Dates: start: 20030401

REACTIONS (6)
  - COUGH [None]
  - DISSEMINATED TUBERCULOSIS [None]
  - DRUG EFFECT DECREASED [None]
  - HYPERKALAEMIA [None]
  - OSTEOPOROSIS [None]
  - PYREXIA [None]
